FAERS Safety Report 18205367 (Version 1)
Quarter: 2020Q3

REPORT INFORMATION
  Report Type: Report from Study
  Country: JP (occurrence: JP)
  Receive Date: 20200827
  Receipt Date: 20200827
  Transmission Date: 20201103
  Serious: Yes (Other)
  Sender: FDA-Public Use
  Company Number: JP-PFIZER INC-2019-06412

PATIENT
  Age: 62 Year
  Sex: Female
  Weight: 52 kg

DRUGS (4)
  1. MEKTOVI [Suspect]
     Active Substance: BINIMETINIB
     Indication: MALIGNANT MELANOMA
     Dosage: 90 MG/DAY
     Route: 048
     Dates: start: 20190319, end: 20190704
  2. BRAFTOVI [Suspect]
     Active Substance: ENCORAFENIB
     Indication: MALIGNANT MELANOMA
     Dosage: 450 MG/DAY
     Route: 048
     Dates: start: 20190319, end: 20190704
  3. MEKTOVI [Suspect]
     Active Substance: BINIMETINIB
     Dosage: 60 MG/DAY
     Route: 048
     Dates: start: 20190705, end: 20190815
  4. BRAFTOVI [Suspect]
     Active Substance: ENCORAFENIB
     Dosage: 300 MG/DAY
     Route: 048
     Dates: start: 20190705, end: 20190815

REACTIONS (2)
  - Serous retinal detachment [Recovered/Resolved]
  - Hepatic function abnormal [Recovered/Resolved]

NARRATIVE: CASE EVENT DATE: 20190423
